FAERS Safety Report 8120935-6 (Version None)
Quarter: 2012Q1

REPORT INFORMATION
  Report Type: 
  Country: None (occurrence: None)
  Receive Date: 20120203
  Receipt Date: 20120120
  Transmission Date: 20120608
  Serious: Yes (Other)
  Sender: FDA-Public Use
  Company Number: TR-1190182

PATIENT
  Age: 29 Year
  Sex: Male

DRUGS (1)
  1. ALCAINE [Suspect]
     Dosage: (OPHTHALMIC)
     Route: 047

REACTIONS (11)
  - CORNEAL THINNING [None]
  - TRANSPLANT REJECTION [None]
  - EYE PAIN [None]
  - EYE IRRITATION [None]
  - TOXICITY TO VARIOUS AGENTS [None]
  - KERATOPATHY [None]
  - CORNEAL EPITHELIUM DEFECT [None]
  - CORNEAL OPACITY [None]
  - NECROSIS [None]
  - DRUG ABUSE [None]
  - CORNEAL INFILTRATES [None]
